FAERS Safety Report 10064314 (Version 1)
Quarter: 2014Q2

REPORT INFORMATION
  Report Type: Spontaneous
  Country: US (occurrence: None)
  Receive Date: 20140407
  Receipt Date: 20140407
  Transmission Date: 20141212
  Serious: Yes (Other)
  Sender: FDA-Public Use
  Company Number: None

PATIENT
  Age: 33 Year
  Sex: Female

DRUGS (1)
  1. ADIPEX [Suspect]
     Indication: WEIGHT DECREASED
     Dosage: TAKEN BY MOUTH

REACTIONS (5)
  - Mood altered [None]
  - Heart rate increased [None]
  - Blood pressure increased [None]
  - Dry mouth [None]
  - Mental disorder [None]
